FAERS Safety Report 9789602 (Version 2)
Quarter: 2014Q1

REPORT INFORMATION
  Report Type: Report from Study
  Country: US (occurrence: US)
  Receive Date: 20131231
  Receipt Date: 20140115
  Transmission Date: 20141002
  Serious: Yes (Hospitalization, Other)
  Sender: FDA-Public Use
  Company Number: US-ACTELION-A-NJ2013-93045

PATIENT
  Age: 45 Year
  Sex: Female

DRUGS (3)
  1. VELETRI [Suspect]
     Indication: PULMONARY ARTERIAL HYPERTENSION
     Dosage: 85 NG/KG, PER MIN
     Route: 041
     Dates: start: 20101228
  2. ADCIRCA [Concomitant]
  3. LETAIRIS [Concomitant]

REACTIONS (5)
  - Hysterectomy [Recovered/Resolved]
  - Cystocele [Recovered/Resolved]
  - Rectocele [Recovered/Resolved]
  - Enterocele [Recovered/Resolved]
  - Haemorrhage [Recovered/Resolved]
